FAERS Safety Report 6883692-7 (Version None)
Quarter: 2010Q3

REPORT INFORMATION
  Report Type: 
  Country: None (occurrence: None)
  Receive Date: 20100729
  Receipt Date: 20100721
  Transmission Date: 20110219
  Serious: Yes (Hospitalization)
  Sender: FDA-Public Use
  Company Number: A0868175A

PATIENT
  Age: 71 Year
  Sex: Female

DRUGS (5)
  1. VENTOLIN [Suspect]
     Indication: CHRONIC OBSTRUCTIVE PULMONARY DISEASE
     Dosage: 2PUFF FOUR TIMES PER DAY
     Route: 055
     Dates: start: 20100401
  2. HYDROCHLOROTHIAZIDE [Concomitant]
  3. PROVENTIL [Concomitant]
  4. THYROID MEDICATION [Concomitant]
  5. ZOCOR [Concomitant]

REACTIONS (1)
  - PNEUMONIA [None]
